FAERS Safety Report 8845713 (Version 1)
Quarter: 2012Q4

REPORT INFORMATION
  Report Type: 
  Country: CA (occurrence: CA)
  Receive Date: 20121017
  Receipt Date: 20121017
  Transmission Date: 20130627
  Serious: Yes (Other)
  Sender: FDA-Public Use
  Company Number: PHHY2007CA00943

PATIENT
  Sex: Male
  Weight: 83 kg

DRUGS (1)
  1. ZOMETA [Suspect]
     Indication: PROSTATE CANCER
     Dates: start: 20071130

REACTIONS (8)
  - Prostatic disorder [Not Recovered/Not Resolved]
  - Metastases to bone [Recovered/Resolved]
  - Bone pain [Recovered/Resolved]
  - Urinary incontinence [Not Recovered/Not Resolved]
  - Myalgia [Recovered/Resolved]
  - Fatigue [Not Recovered/Not Resolved]
  - Nausea [Not Recovered/Not Resolved]
  - Influenza like illness [Unknown]
